FAERS Safety Report 5210595-6 (Version None)
Quarter: 2007Q1

REPORT INFORMATION
  Report Type: 
  Country: None (occurrence: None)
  Receive Date: 20070117
  Receipt Date: 20070109
  Transmission Date: 20070707
  Serious: Yes (Death, Hospitalization)
  Sender: FDA-Public Use
  Company Number: AR-MERCK-0612USA01114

PATIENT
  Age: 34 Year
  Sex: Male

DRUGS (7)
  1. STROMECTOL [Suspect]
     Indication: STRONGYLOIDIASIS
     Route: 048
  2. SULFAMETHOXAZOLE AND TRIMETHOPRIM [Concomitant]
     Indication: PNEUMOCYSTIS JIROVECI PNEUMONIA
     Route: 048
  3. SULFAMETHOXAZOLE AND TRIMETHOPRIM [Concomitant]
     Route: 042
  4. PREDNISONE [Suspect]
     Indication: PNEUMOCYSTIS JIROVECI PNEUMONIA
     Route: 048
  5. ABACAVIR SULFATE [Concomitant]
     Route: 065
  6. ZIDOVUDINE [Concomitant]
     Route: 065
  7. LAMIVUDINE [Concomitant]
     Route: 065

REACTIONS (8)
  - ACUTE RESPIRATORY DISTRESS SYNDROME [None]
  - ANOGENITAL WARTS [None]
  - CARDIO-RESPIRATORY ARREST [None]
  - ILEUS [None]
  - MULTI-ORGAN FAILURE [None]
  - NO THERAPEUTIC RESPONSE [None]
  - PULMONARY OEDEMA [None]
  - STRONGYLOIDIASIS [None]
